FAERS Safety Report 14624459 (Version 1)
Quarter: 2018Q1

REPORT INFORMATION
  Report Type: Spontaneous
  Country: US (occurrence: US)
  Receive Date: 20180310
  Receipt Date: 20180310
  Transmission Date: 20180509
  Serious: Yes (Other)
  Sender: FDA-Public Use
  Company Number: None

PATIENT
  Age: 36 Year
  Sex: Male
  Weight: 106.2 kg

DRUGS (7)
  1. ZOLOFT [Concomitant]
     Active Substance: SERTRALINE HYDROCHLORIDE
  2. GABAPENTIN. [Suspect]
     Active Substance: GABAPENTIN
     Indication: ANXIETY
     Route: 048
     Dates: start: 20180226, end: 20180303
  3. TYLENOL [Concomitant]
     Active Substance: ACETAMINOPHEN
  4. METOPROLOL, (NARATRIPTAN, IMITREX, VIAGRA) [Concomitant]
  5. ALPRAZOLAM. [Concomitant]
     Active Substance: ALPRAZOLAM
  6. ADVIL [Concomitant]
     Active Substance: IBUPROFEN
  7. PREVACID [Concomitant]
     Active Substance: LANSOPRAZOLE

REACTIONS (11)
  - Dissociation [None]
  - Loss of consciousness [None]
  - Vomiting [None]
  - Amnesia [None]
  - Hypersomnia [None]
  - Nausea [None]
  - Personality change [None]
  - Dissociative amnesia [None]
  - Mood swings [None]
  - Sedation [None]
  - Pain [None]

NARRATIVE: CASE EVENT DATE: 20180303
